FAERS Safety Report 5584503-2 (Version None)
Quarter: 2008Q1

REPORT INFORMATION
  Report Type: 
  Country: None (occurrence: None)
  Receive Date: 20080108
  Receipt Date: 20071210
  Transmission Date: 20080703
  Serious: Yes (Hospitalization, Other)
  Sender: FDA-Public Use
  Company Number: TR-ELI_LILLY_AND_COMPANY-TR200712004852

PATIENT
  Sex: Female
  Weight: 53 kg

DRUGS (9)
  1. HUMALOG [Suspect]
     Dosage: 24 U, EACH MORNING
     Route: 058
     Dates: start: 20030101
  2. LANTUS [Concomitant]
     Dosage: 8 U, EACH MORNING
     Route: 058
  3. LANTUS [Concomitant]
     Dosage: 8 U, AT NOON
     Route: 058
  4. LANTUS [Concomitant]
     Dosage: 8 U, EACH EVENING
     Route: 058
  5. GLUKOFEN [Concomitant]
     Dosage: UNK, 2/D, MORNING AND EVENING
     Route: 048
     Dates: start: 19890101
  6. INHIBACE [Concomitant]
     Dosage: UNK, DAILY (1/D)
     Route: 048
     Dates: start: 19890101
  7. HYPNOTICS AND SEDATIVES [Concomitant]
     Dosage: 0.5 D/F, DAILY (1/D)
     Dates: start: 20060101
  8. CIPRALEX [Concomitant]
     Indication: ANXIOLYTIC THERAPY
     Dosage: UNK, DAILY (1/D)
     Route: 048
     Dates: start: 20060101
  9. NEURONTIN [Concomitant]
     Indication: ANALGESIC THERAPY
     Dosage: UNK, 2/D, MORNING AND EVENING
     Route: 048
     Dates: start: 20030101

REACTIONS (3)
  - DYSPNOEA [None]
  - PNEUMONIA [None]
  - TUBERCULOSIS [None]
